FAERS Safety Report 19360246 (Version 2)
Quarter: 2021Q2

REPORT INFORMATION
  Report Type: Spontaneous
  Country: DK (occurrence: DK)
  Receive Date: 20210601
  Receipt Date: 20210610
  Transmission Date: 20210717
  Serious: Yes (Other)
  Sender: FDA-Public Use
  Company Number: DK-BAYER-2021-146967

PATIENT
  Age: 30 Year
  Sex: Female

DRUGS (1)
  1. KYLEENA [Suspect]
     Active Substance: LEVONORGESTREL
     Indication: CONTRACEPTION
     Dosage: 17.5 ?G PER DAY CONTINUOUSLY
     Route: 015
     Dates: start: 20210210

REACTIONS (5)
  - Ectopic pregnancy with contraceptive device [None]
  - Intra-abdominal haemorrhage [None]
  - Genital haemorrhage [None]
  - Drug ineffective [None]
  - Abdominal pain lower [None]

NARRATIVE: CASE EVENT DATE: 20210219
